FAERS Safety Report 6788321-9 (Version None)
Quarter: 2010Q2

REPORT INFORMATION
  Report Type: 
  Country: None (occurrence: None)
  Receive Date: 20100623
  Receipt Date: 20080227
  Transmission Date: 20101027
  Serious: No
  Sender: FDA-Public Use
  Company Number: US-PFIZER INC-2008018185

PATIENT
  Sex: Male

DRUGS (7)
  1. GEODON [Suspect]
  2. SYNTHROID [Concomitant]
  3. KLONOPIN [Concomitant]
  4. CYTOMEL [Concomitant]
  5. LAMICTAL [Concomitant]
  6. ANTIDEPRESSANTS [Concomitant]
  7. ZOLOFT [Concomitant]

REACTIONS (1)
  - SKIN BURNING SENSATION [None]
